FAERS Safety Report 7094869-2 (Version None)
Quarter: 2010Q4

REPORT INFORMATION
  Report Type: 
  Country: None (occurrence: None)
  Receive Date: 20101111
  Receipt Date: 20101103
  Transmission Date: 20110411
  Serious: Yes (Other)
  Sender: FDA-Public Use
  Company Number: US-BIOGENIDEC-2010BI039175

PATIENT
  Sex: Female

DRUGS (1)
  1. AVONEX [Suspect]
     Indication: PRODUCT USED FOR UNKNOWN INDICATION
     Route: 030

REACTIONS (9)
  - BALANCE DISORDER [None]
  - FALL [None]
  - FATIGUE [None]
  - MALAISE [None]
  - NASAL SINUS CANCER [None]
  - PAIN [None]
  - PERNICIOUS ANAEMIA [None]
  - TOOTH LOSS [None]
  - UPPER LIMB FRACTURE [None]
